FAERS Safety Report 4363864-6 (Version None)
Quarter: 2004Q2

REPORT INFORMATION
  Report Type: 
  Country: None (occurrence: None)
  Receive Date: 20040524
  Receipt Date: 20040524
  Transmission Date: 20050107
  Serious: Yes (Hospitalization)
  Sender: FDA-Public Use
  Company Number: None

PATIENT
  Age: 59 Year
  Sex: Male
  Weight: 42.2299 kg

DRUGS (9)
  1. INTEGRILIN [Suspect]
     Indication: ANTIPLATELET THERAPY
     Dosage: 2 (8.5 MLBOLUSES) 15 ML/HR IV
     Route: 042
     Dates: start: 20040517, end: 20040518
  2. HEPARIN [Suspect]
     Indication: ANTICOAGULANT THERAPY
     Dosage: 4550 UNITS IV
     Route: 042
     Dates: start: 20040517
  3. MIDAZOLAM HCL [Concomitant]
  4. FENTANYL [Concomitant]
  5. NITROGLYCERIN [Concomitant]
  6. CEFAZIDINE [Concomitant]
  7. ASPIRIN [Concomitant]
  8. PEPCID [Concomitant]
  9. PLAVIX [Concomitant]

REACTIONS (2)
  - CONTUSION [None]
  - ECCHYMOSIS [None]
